FAERS Safety Report 5140500-2 (Version None)
Quarter: 2006Q4

REPORT INFORMATION
  Report Type: 
  Country: None (occurrence: None)
  Receive Date: 20061027
  Receipt Date: 20061027
  Transmission Date: 20070319
  Serious: Yes (Other)
  Sender: FDA-Public Use
  Company Number: None

PATIENT
  Sex: Female
  Weight: 58.9676 kg

DRUGS (1)
  1. SERTRALINE [Suspect]
     Indication: DEPRESSION
     Dosage: 100MG DAILY PO
     Route: 048
     Dates: start: 20060907, end: 20061017

REACTIONS (4)
  - DEPRESSION [None]
  - DIZZINESS [None]
  - NYSTAGMUS [None]
  - PHARMACEUTICAL PRODUCT COMPLAINT [None]
